FAERS Safety Report 6014474-6 (Version None)
Quarter: 2008Q4

REPORT INFORMATION
  Report Type: 
  Country: None (occurrence: None)
  Receive Date: 20081219
  Receipt Date: 20080721
  Transmission Date: 20090506
  Serious: No
  Sender: FDA-Public Use
  Company Number: A0736708A

PATIENT
  Age: 75 Year
  Sex: Male

DRUGS (6)
  1. AVODART [Suspect]
     Indication: PROSTATITIS
     Dosage: .5MG PER DAY
     Route: 048
     Dates: start: 20061101, end: 20070213
  2. DILTIAZEM [Concomitant]
  3. COUMADIN [Concomitant]
  4. FLOVENT [Concomitant]
  5. SINGULAIR [Concomitant]
  6. MEDROL [Concomitant]

REACTIONS (1)
  - EOSINOPHILIA [None]
